FAERS Safety Report 6369887-X (Version None)
Quarter: 2009Q3

REPORT INFORMATION
  Report Type: 
  Country: None (occurrence: None)
  Receive Date: 20090923
  Receipt Date: 20070619
  Transmission Date: 20100115
  Serious: Yes (Other)
  Sender: FDA-Public Use
  Company Number: US-ASTRAZENECA-2006UW11210

PATIENT
  Age: 540 Month
  Sex: Female
  Weight: 116.6 kg

DRUGS (23)
  1. SEROQUEL [Suspect]
     Indication: SCHIZOAFFECTIVE DISORDER
     Route: 048
     Dates: start: 20050112
  2. SEROQUEL [Suspect]
     Indication: DEPRESSION
     Route: 048
     Dates: start: 20050112
  3. SEROQUEL [Suspect]
     Indication: ANXIETY
     Route: 048
     Dates: start: 20050112
  4. SEROQUEL [Suspect]
     Route: 048
     Dates: start: 20050201, end: 20050301
  5. SEROQUEL [Suspect]
     Route: 048
     Dates: start: 20050201, end: 20050301
  6. SEROQUEL [Suspect]
     Route: 048
     Dates: start: 20050201, end: 20050301
  7. ABILIFY [Concomitant]
     Dates: start: 20060101
  8. GEODON [Concomitant]
  9. RISPERDAL [Concomitant]
  10. STELAZINE [Concomitant]
  11. OLANZAPINE [Concomitant]
     Dates: start: 20050301, end: 20050501
  12. MARIJUANA [Concomitant]
     Dosage: ONCE EVERY SIX MONTHS
  13. AVANDIA [Concomitant]
  14. GLUCOPHAGE [Concomitant]
  15. AMBIEN [Concomitant]
  16. LEXAPRO [Concomitant]
     Dosage: 10-20 MG
  17. NORVASC [Concomitant]
  18. LIPITOR [Concomitant]
  19. PAXIL [Concomitant]
  20. CLONAZEPAM [Concomitant]
     Indication: ANXIETY
     Dosage: 1-2 MG
  21. PULMICORT [Concomitant]
  22. TEMAZEPAM [Concomitant]
     Indication: SLEEP DISORDER
  23. LANTUS [Concomitant]

REACTIONS (2)
  - DIABETES MELLITUS [None]
  - PANCREATITIS [None]
